FAERS Safety Report 8592569-0 (Version None)
Quarter: 2012Q3

REPORT INFORMATION
  Report Type: 
  Country: None (occurrence: None)
  Receive Date: 20120814
  Receipt Date: 20120807
  Transmission Date: 20120928
  Serious: Yes (Hospitalization, Other)
  Sender: FDA-Public Use
  Company Number: US-ASTRAZENECA-2010SE10208

PATIENT
  Age: 52 Year
  Sex: Female

DRUGS (4)
  1. CRESTOR [Suspect]
     Route: 048
  2. SEROQUEL [Suspect]
     Indication: SLEEP DISORDER
     Route: 048
     Dates: start: 20050101
  3. SEROQUEL [Suspect]
     Indication: BIPOLAR DISORDER
     Route: 048
     Dates: start: 20050101
  4. SYMBICORT [Suspect]
     Dosage: 160/4.5 MCG, DAILY
     Route: 055

REACTIONS (8)
  - VOMITING [None]
  - SKELETAL INJURY [None]
  - MALAISE [None]
  - ROAD TRAFFIC ACCIDENT [None]
  - ABASIA [None]
  - DRUG DOSE OMISSION [None]
  - APHAGIA [None]
  - DEHYDRATION [None]
